FAERS Safety Report 22187841 (Version 4)
Quarter: 2023Q2

REPORT INFORMATION
  Report Type: Report from Study
  Country: US (occurrence: US)
  Receive Date: 20230408
  Receipt Date: 20230504
  Transmission Date: 20230721
  Serious: Yes (Hospitalization, Other)
  Sender: FDA-Public Use
  Company Number: US-002147023-NVSC2023US076604

PATIENT
  Sex: Female
  Weight: 97.959 kg

DRUGS (1)
  1. ENTRESTO [Suspect]
     Active Substance: SACUBITRIL\VALSARTAN
     Indication: Product used for unknown indication
     Dosage: 1 DOSAGE FORM, BID (49/51 MG)
     Route: 065
     Dates: start: 202212

REACTIONS (8)
  - Renal failure [Recovering/Resolving]
  - Memory impairment [Not Recovered/Not Resolved]
  - Hepatic cirrhosis [Unknown]
  - Hepatic function abnormal [Not Recovered/Not Resolved]
  - Cardiac failure congestive [Unknown]
  - Weight increased [Unknown]
  - Swelling [Unknown]
  - Hypotension [Unknown]
